FAERS Safety Report 13928067 (Version 7)
Quarter: 2020Q1

REPORT INFORMATION
  Report Type: Spontaneous
  Country: US (occurrence: US)
  Receive Date: 20170901
  Receipt Date: 20200309
  Transmission Date: 20200409
  Serious: Yes (Other)
  Sender: FDA-Public Use
  Company Number: US-009507513-1708USA011765

PATIENT
  Age: 81 Year
  Sex: Male
  Weight: 94.15 kg

DRUGS (1)
  1. BELSOMRA [Suspect]
     Active Substance: SUVOREXANT
     Indication: INSOMNIA
     Dosage: 10 MG, AT BEDTIME
     Route: 048

REACTIONS (6)
  - Terminal insomnia [Not Recovered/Not Resolved]
  - Somnambulism [Recovered/Resolved]
  - Fall [Unknown]
  - Abnormal behaviour [Not Recovered/Not Resolved]
  - Impaired driving ability [Not Recovered/Not Resolved]
  - Skin laceration [Not Recovered/Not Resolved]

NARRATIVE: CASE EVENT DATE: 20170820
